FAERS Safety Report 9470445 (Version 1)
Quarter: 2013Q3

REPORT INFORMATION
  Report Type: Spontaneous
  Country: US (occurrence: None)
  Receive Date: 20130820
  Receipt Date: 20130820
  Transmission Date: 20140515
  Serious: Yes (Other)
  Sender: FDA-Public Use
  Company Number: None

PATIENT
  Age: 61 Year
  Sex: Female
  Weight: 81.65 kg

DRUGS (2)
  1. MECLIZINE [Suspect]
     Indication: VERTIGO
     Route: 048
  2. MECLIZINE [Suspect]
     Indication: INNER EAR DISORDER
     Route: 048

REACTIONS (3)
  - Vertigo [None]
  - Vision blurred [None]
  - Eyelid ptosis [None]
